FAERS Safety Report 5239236-9 (Version None)
Quarter: 2007Q1

REPORT INFORMATION
  Report Type: 
  Country: None (occurrence: None)
  Receive Date: 20061208
  Receipt Date: 20050613
  Transmission Date: 20070707
  Serious: Yes (Other)
  Sender: FDA-Public Use
  Company Number: 2005UW09094

PATIENT
  Age: 67 Year
  Sex: Female
  Weight: 113.39 kg

DRUGS (1)
  1. CRESTOR [Suspect]
     Indication: BLOOD CHOLESTEROL INCREASED
     Dates: start: 20050601, end: 20050608

REACTIONS (2)
  - ASTHENIA [None]
  - GAIT DISTURBANCE [None]
